FAERS Safety Report 14168235 (Version 2)
Quarter: 2018Q2

REPORT INFORMATION
  Report Type: Spontaneous
  Country: US (occurrence: US)
  Receive Date: 20171107
  Receipt Date: 20180515
  Transmission Date: 20180711
  Serious: No
  Sender: FDA-Public Use
  Company Number: US-SA-2017SA105078

PATIENT
  Age: 81 Year
  Sex: Male
  Weight: 77 kg

DRUGS (5)
  1. TOUJEO [Suspect]
     Active Substance: INSULIN GLARGINE
     Indication: DIABETES MELLITUS
     Dosage: DOSE:16 UNIT(S)
     Route: 051
  2. LEVOTHYROXINE. [Concomitant]
     Active Substance: LEVOTHYROXINE
     Dosage: 112
     Route: 065
     Dates: start: 198801
  3. ATORVASTATIN [Concomitant]
     Active Substance: ATORVASTATIN
     Route: 065
     Dates: start: 198806
  4. SOLOSTAR [Concomitant]
     Active Substance: DEVICE
  5. OMEPRAZOLE. [Concomitant]
     Active Substance: OMEPRAZOLE
     Route: 065
     Dates: start: 201511

REACTIONS (2)
  - Blood glucose increased [Unknown]
  - Product storage error [Unknown]

NARRATIVE: CASE EVENT DATE: 20170607
